FAERS Safety Report 6268090-1 (Version None)
Quarter: 2009Q3

REPORT INFORMATION
  Report Type: 
  Country: None (occurrence: None)
  Receive Date: 20090715
  Receipt Date: 20070823
  Transmission Date: 20100115
  Serious: Yes (Other)
  Sender: FDA-Public Use
  Company Number: US-ASTRAZENECA-2006UW10870

PATIENT
  Age: 14588 Day
  Sex: Male
  Weight: 129.7 kg

DRUGS (27)
  1. SEROQUEL [Suspect]
     Indication: BIPOLAR DISORDER
     Dosage: 100 MG TO 400 MG
     Route: 048
     Dates: start: 20040101, end: 20050101
  2. SEROQUEL [Suspect]
     Indication: HALLUCINATION, AUDITORY
     Dosage: 100 MG TO 400 MG
     Route: 048
     Dates: start: 20040101, end: 20050101
  3. SEROQUEL [Suspect]
     Dosage: 100 MG TO 400 MG
     Route: 048
     Dates: start: 20040825, end: 20070328
  4. SEROQUEL [Suspect]
     Dosage: 100 MG TO 400 MG
     Route: 048
     Dates: start: 20040825, end: 20070328
  5. ARIPIPRAZOLE [Concomitant]
  6. PERCOCET [Concomitant]
     Indication: PAIN
     Dosage: 10/325 MG EVERY 4 HOUR AS NEEDED
  7. REMERON [Concomitant]
     Route: 048
  8. LEXAPRO [Concomitant]
     Indication: DEPRESSIVE SYMPTOM
     Dosage: 10 MG ONCE IN THE MORNING, 20 MG ONCE IN THE MORNING
     Route: 048
  9. LEXAPRO [Concomitant]
     Indication: EUPHORIC MOOD
     Dosage: 10 MG ONCE IN THE MORNING, 20 MG ONCE IN THE MORNING
     Route: 048
  10. CELEXA [Concomitant]
  11. HUMULIN R [Concomitant]
     Dosage: 63 UNITS IN THE MORNING AND 63 UNITS IN THE EVENING
  12. ALBUTEROL [Concomitant]
  13. NEURONTIN [Concomitant]
     Indication: DIABETIC NEUROPATHY
     Dosage: 600 MG TID, 600 MG ONCE IN THE MORNING AND ONCE IN EVENING
  14. GLUCOPHAGE [Concomitant]
     Indication: DIABETES MELLITUS
  15. GLYBURIDE [Concomitant]
     Indication: DIABETES MELLITUS
  16. PRILOSEC [Concomitant]
     Indication: GASTROOESOPHAGEAL REFLUX DISEASE
  17. SINEQUAN [Concomitant]
  18. LISINOPRIL [Concomitant]
     Dosage: 10 MG-20 MG
  19. TRAMADOL HCL [Concomitant]
     Indication: PAIN
     Dosage: ONE OR TWO 50 MG TABLET EVERY 4-6 HOURS
     Route: 048
  20. HYDROCODONE BITARTRATE AND ACETAMINOPHEN [Concomitant]
  21. FAMOTIDINE [Concomitant]
  22. KETOROLAC TROMETHAMINE [Concomitant]
  23. KETOROLAC TROMETHAMINE [Concomitant]
     Dosage: 30-60 MG
  24. PAXIL [Concomitant]
     Indication: ANXIETY
     Dosage: 12.5 MG Q.I.D. FOR 5 DAYS THEN 12.5 MG Q.D., 20 MG Q.D.
     Route: 048
  25. PAXIL [Concomitant]
     Indication: PANIC ATTACK
     Dosage: 12.5 MG Q.I.D. FOR 5 DAYS THEN 12.5 MG Q.D., 20 MG Q.D.
     Route: 048
  26. ADVAIR HFA [Concomitant]
     Indication: ASTHMA
  27. DEPAKOTE [Concomitant]
     Dosage: 250 MG Q.H.S., 500 MG Q.H.S.
     Route: 048

REACTIONS (2)
  - DIABETES MELLITUS [None]
  - DIABETIC NEUROPATHY [None]
